FAERS Safety Report 25418045 (Version 1)
Quarter: 2025Q2

REPORT INFORMATION
  Report Type: Spontaneous
  Country: US (occurrence: None)
  Receive Date: 20250609
  Receipt Date: 20250609
  Transmission Date: 20250717
  Serious: Yes (Other)
  Sender: FDA-CTU
  Company Number: None

PATIENT
  Age: 31 Year
  Sex: Female
  Weight: 76.5 kg

DRUGS (1)
  1. VRAYLAR [Suspect]
     Active Substance: CARIPRAZINE
     Indication: Depression
     Dates: start: 20250220, end: 20250222

REACTIONS (4)
  - Musculoskeletal stiffness [None]
  - Movement disorder [None]
  - Job dissatisfaction [None]
  - Therapy cessation [None]

NARRATIVE: CASE EVENT DATE: 20250220
